FAERS Safety Report 10753909 (Version 1)
Quarter: 2015Q1

REPORT INFORMATION
  Report Type: Spontaneous
  Country: US (occurrence: None)
  Receive Date: 20150129
  Receipt Date: 20150129
  Transmission Date: 20150721
  Serious: No
  Sender: FDA-Public Use
  Company Number: None

PATIENT
  Age: 61 Year
  Sex: Male
  Weight: 73.03 kg

DRUGS (1)
  1. NASACORT ALLERGY 24HR [Suspect]
     Active Substance: TRIAMCINOLONE ACETONIDE
     Indication: MULTIPLE ALLERGIES
     Dosage: 2 SPRAYS/NOSTRIL DAILY
     Route: 045
     Dates: start: 20141209, end: 20150128

REACTIONS (1)
  - Blood pressure systolic increased [None]

NARRATIVE: CASE EVENT DATE: 20150128
